FAERS Safety Report 11247599 (Version 1)
Quarter: 2015Q3

REPORT INFORMATION
  Report Type: Report from Study
  Country: FR (occurrence: FR)
  Receive Date: 20150708
  Receipt Date: 20150708
  Transmission Date: 20151125
  Serious: Yes (Hospitalization, Other)
  Sender: FDA-Public Use
  Company Number: FR-GLAXOSMITHKLINE-FR2015GSK097566

PATIENT
  Age: 52 Year
  Sex: Female

DRUGS (6)
  1. ELISOR [Concomitant]
     Active Substance: PRAVASTATIN SODIUM
  2. FLUDEX (NOS) [Concomitant]
  3. TRIATEC [Concomitant]
     Active Substance: RAMIPRIL
     Dosage: 10 MG, QD
  4. OMEGA-3-ACID ETHYL ESTERS. [Suspect]
     Active Substance: OMEGA-3-ACID ETHYL ESTERS
     Indication: ISCHAEMIC HEART DISEASE PROPHYLAXIS
     Dosage: UNK
     Dates: start: 20061003
  5. KARDEGIC [Concomitant]
     Active Substance: ASPIRIN LYSINE
     Dosage: 240 MG, QD
  6. ISOPTINE [Concomitant]
     Active Substance: VERAPAMIL HYDROCHLORIDE

REACTIONS (1)
  - Hypertensive crisis [Recovered/Resolved]

NARRATIVE: CASE EVENT DATE: 20080104
